FAERS Safety Report 9888118 (Version 2)
Quarter: 2014Q1

REPORT INFORMATION
  Report Type: Spontaneous
  Country: NO (occurrence: None)
  Receive Date: 20140207
  Receipt Date: 20140314
  Transmission Date: 20141002
  Serious: Yes (Other)
  Sender: FDA-Public Use
  Company Number: 2014AP000915

PATIENT
  Age: 33 Year
  Sex: Male

DRUGS (9)
  1. OLANZAPINE [Suspect]
  2. LEVOMEPROMAZINE [Suspect]
  3. AMISULPRIDE [Suspect]
  4. PERPHENAZINE [Suspect]
  5. CLOZAPINE [Suspect]
  6. CHLORPROTHIXENE [Suspect]
     Indication: PRODUCT USED FOR UNKNOWN INDICATION
  7. BUPRENORPHINE [Suspect]
  8. RISPERIDONE [Suspect]
  9. TERBUTALINE [Suspect]

REACTIONS (5)
  - Spontaneous penile erection [None]
  - Myalgia [None]
  - Priapism [None]
  - Drug ineffective [None]
  - Hyperprolactinaemia [None]
